FAERS Safety Report 6510844-8 (Version None)
Quarter: 2009Q4

REPORT INFORMATION
  Report Type: 
  Country: None (occurrence: None)
  Receive Date: 20091222
  Receipt Date: 20090115
  Transmission Date: 20100525
  Serious: No
  Sender: FDA-Public Use
  Company Number: US-ASTRAZENECA-2009UW01338

PATIENT
  Age: 63 Year
  Sex: Female
  Weight: 58.1 kg

DRUGS (4)
  1. CRESTOR [Suspect]
     Indication: HYPERCHOLESTEROLAEMIA
     Route: 048
     Dates: start: 20081205, end: 20081215
  2. NEXIUM [Concomitant]
  3. HYOSCYAMINE [Concomitant]
  4. ETODOLAC-SR [Concomitant]

REACTIONS (2)
  - DYSKINESIA [None]
  - MUSCLE SPASMS [None]
